FAERS Safety Report 5221985-X (Version None)
Quarter: 2007Q1

REPORT INFORMATION
  Report Type: 
  Country: None (occurrence: None)
  Receive Date: 20070129
  Receipt Date: 20060227
  Transmission Date: 20070707
  Serious: Yes (Other)
  Sender: FDA-Public Use
  Company Number: 2006023920

PATIENT
  Age: 21 Year
  Sex: Male

DRUGS (2)
  1. WELLBUTRIN [Suspect]
     Indication: STRESS
     Dosage: 150MG PER DAY
     Route: 048
     Dates: start: 20030101, end: 20060215
  2. DRAMAMINE [Suspect]
     Indication: NAUSEA
     Dosage: 3TAB SINGLE DOSE
     Route: 048
     Dates: start: 20060215, end: 20060215

REACTIONS (2)
  - HALLUCINATION [None]
  - VOMITING [None]
